FAERS Safety Report 14384013 (Version 1)
Quarter: 2018Q1

REPORT INFORMATION
  Report Type: Spontaneous
  Country: US (occurrence: US)
  Receive Date: 20180115
  Receipt Date: 20180115
  Transmission Date: 20180509
  Serious: No
  Sender: FDA-Public Use
  Company Number: US-PFIZER INC-2018014231

PATIENT
  Age: 28 Year
  Sex: Female

DRUGS (3)
  1. ESTRADIOL. [Suspect]
     Active Substance: ESTRADIOL
     Dosage: 0.1 MG, 1X/DAY
     Route: 062
  2. PROVERA [Suspect]
     Active Substance: MEDROXYPROGESTERONE ACETATE
     Dosage: 5 MG, DAILY; (FOR 10 DAYS)
  3. PROVERA [Suspect]
     Active Substance: MEDROXYPROGESTERONE ACETATE
     Dosage: 5 MG, UNK; (10 DAYS A MONTH)

REACTIONS (5)
  - Muscle spasms [Unknown]
  - Drug hypersensitivity [Unknown]
  - Uterine spasm [Unknown]
  - Withdrawal bleed [Unknown]
  - Arthralgia [Unknown]

NARRATIVE: CASE EVENT DATE: 20171114
